FAERS Safety Report 17259813 (Version 1)
Quarter: 2020Q1

REPORT INFORMATION
  Report Type: Spontaneous
  Country: None (occurrence: US)
  Receive Date: 20200110
  Receipt Date: 20200110
  Transmission Date: 20200409
  Serious: Yes (Hospitalization, Other)
  Sender: FDA-Public Use
  Company Number: US-ARMSTRONG PHARMACEUTICALS, INC.-2078858

PATIENT
  Age: 27 Year
  Sex: Female
  Weight: 150 kg

DRUGS (1)
  1. PRIMATENE MIST [Suspect]
     Active Substance: EPINEPHRINE
     Indication: ASTHMA
     Route: 055
     Dates: start: 201908

REACTIONS (6)
  - Pneumonia [Recovered/Resolved]
  - Dependence on respirator [Recovered/Resolved]
  - Hospitalisation [Recovered/Resolved]
  - Pneumonia [Not Recovered/Not Resolved]
  - Burning sensation [Recovered/Resolved]
  - Hospitalisation [Recovered/Resolved]

NARRATIVE: CASE EVENT DATE: 201908
